FAERS Safety Report 7242764-8 (Version None)
Quarter: 2011Q1

REPORT INFORMATION
  Report Type: 
  Country: None (occurrence: None)
  Receive Date: 20110125
  Receipt Date: 20110118
  Transmission Date: 20110831
  Serious: Yes (Hospitalization)
  Sender: FDA-Public Use
  Company Number: CA-PFIZER INC-2010157817

PATIENT
  Age: 49 Year
  Sex: Male
  Weight: 74.376 kg

DRUGS (12)
  1. SIMVASTATIN [Concomitant]
     Indication: BLOOD CHOLESTEROL
     Dosage: 40 MG, AT BEDTIME
     Dates: start: 20000101
  2. NORVASC [Concomitant]
     Indication: HYPERTENSION
     Dosage: 5 MG, 1X/DAY
     Dates: start: 20101001
  3. METFORMIN [Concomitant]
     Indication: TYPE 2 DIABETES MELLITUS
     Dosage: 500 UNK, 3X/DAY
  4. ALLOPURINOL [Concomitant]
     Dosage: 100 MG, 1X/DAY
     Dates: start: 20101001
  5. COZAAR [Concomitant]
     Indication: PROPHYLAXIS
     Dosage: 100 MG, AT BEDTIME
  6. FERROUS SULFATE [Concomitant]
     Dosage: 300 UNK, 1X/DAY AT BEDTIME
  7. COLCHICINE [Concomitant]
     Dosage: 0.6 MG, 1X/DAY
     Dates: start: 20101001
  8. PENTASA [Concomitant]
     Indication: CROHN'S DISEASE
     Dosage: 1500 MG, 2X/DAY
  9. FUROSEMIDE [Concomitant]
     Indication: NEPHRECTOMY
     Dosage: 20 MG, 1X/DAY
     Dates: start: 20080101
  10. SUTENT [Suspect]
     Indication: RENAL CANCER METASTATIC
     Dosage: 50 MG, 2X/DAY
     Route: 048
     Dates: start: 20101013, end: 20101113
  11. PREVACID [Concomitant]
     Dosage: 30 UNK, 1X/DAY
     Dates: start: 20080101
  12. ASPIRIN [Concomitant]
     Dosage: 81 (1PILL)

REACTIONS (16)
  - HEPATIC ENZYME INCREASED [None]
  - HAEMOGLOBIN DECREASED [None]
  - DEHYDRATION [None]
  - INCORRECT DOSE ADMINISTERED [None]
  - RASH [None]
  - GOUT [None]
  - HYPERTENSION [None]
  - EPISTAXIS [None]
  - FATIGUE [None]
  - DIZZINESS [None]
  - DYSPHAGIA [None]
  - PALLOR [None]
  - BLOOD CREATININE INCREASED [None]
  - FEELING ABNORMAL [None]
  - WHITE BLOOD CELL COUNT DECREASED [None]
  - PLATELET COUNT DECREASED [None]
